FAERS Safety Report 5062789-0 (Version None)
Quarter: 2006Q3

REPORT INFORMATION
  Report Type: 
  Country: None (occurrence: None)
  Receive Date: 20060724
  Receipt Date: 20060724
  Transmission Date: 20061208
  Serious: Yes (Hospitalization)
  Sender: FDA-Public Use
  Company Number: None

PATIENT
  Sex: Male
  Weight: 86.1834 kg

DRUGS (20)
  1. BEVACIZUMAB 5MG/KG, GENENTECH [Suspect]
     Indication: ENDOCRINE NEOPLASM
     Dosage: 465 MG QS  Q2WEEKS IV
     Route: 042
     Dates: start: 20060424, end: 20060612
  2. BEVACIZUMAB 5MG/KG, GENENTECH [Suspect]
     Indication: PANCREATIC NEOPLASM
     Dosage: 465 MG QS  Q2WEEKS IV
     Route: 042
     Dates: start: 20060424, end: 20060612
  3. DEXAMETHASONE TAB [Suspect]
     Indication: ENDOCRINE NEOPLASM
     Dosage: 20 MG Q2WEEKS IV
     Route: 042
     Dates: start: 20060424, end: 20060612
  4. DEXAMETHASONE TAB [Suspect]
     Indication: PANCREATIC NEOPLASM
     Dosage: 20 MG Q2WEEKS IV
     Route: 042
     Dates: start: 20060424, end: 20060612
  5. LORAZEPAM [Suspect]
     Indication: ENDOCRINE NEOPLASM
     Dosage: 1MG Q2WEEKS PO
     Route: 048
     Dates: start: 20060424, end: 20060612
  6. LORAZEPAM [Suspect]
     Indication: PANCREATIC NEOPLASM
     Dosage: 1MG Q2WEEKS PO
     Route: 048
     Dates: start: 20060424, end: 20060612
  7. GRANISETRON  HCL [Suspect]
     Indication: ENDOCRINE NEOPLASM
     Dosage: 1000MCG Q2WEEKS IV
     Route: 042
     Dates: start: 20060424, end: 20060612
  8. GRANISETRON  HCL [Suspect]
     Indication: PANCREATIC NEOPLASM
     Dosage: 1000MCG Q2WEEKS IV
     Route: 042
     Dates: start: 20060424, end: 20060612
  9. OXALIPLATIN, 65MG/M2 LATEST DOSE,SANOFI-SYNTHELABO [Suspect]
     Indication: ENDOCRINE NEOPLASM
     Dosage: 130MG LATEST DOSE Q2WEEKS IV
     Route: 042
     Dates: start: 20060424, end: 20060612
  10. OXALIPLATIN, 65MG/M2 LATEST DOSE,SANOFI-SYNTHELABO [Suspect]
     Indication: PANCREATIC NEOPLASM
     Dosage: 130MG LATEST DOSE Q2WEEKS IV
     Route: 042
     Dates: start: 20060424, end: 20060612
  11. LEUCOVORIN CALCIUM [Suspect]
     Indication: ENDOCRINE NEOPLASM
     Dosage: 400 MG Q2WEEKS IV
     Route: 042
     Dates: start: 20060424, end: 20060612
  12. LEUCOVORIN CALCIUM [Suspect]
     Indication: PANCREATIC NEOPLASM
     Dosage: 400 MG Q2WEEKS IV
     Route: 042
     Dates: start: 20060424, end: 20060612
  13. FLUOROURACIL [Suspect]
     Dosage: 2400 MG Q2WEEKS IV
     Route: 042
     Dates: start: 20060424, end: 20060612
  14. LISINOPRIL [Concomitant]
  15. FENTANYL [Concomitant]
  16. DILAUDID [Concomitant]
  17. ARANESP [Concomitant]
  18. PROTONIX [Concomitant]
  19. PAXIL [Concomitant]
  20. ATIVAN [Concomitant]

REACTIONS (10)
  - ABDOMINAL PAIN [None]
  - ANAEMIA [None]
  - ASTHENIA [None]
  - FATIGUE [None]
  - GASTRITIS EROSIVE [None]
  - ILEUS [None]
  - LIVER ABSCESS [None]
  - PLATELET COUNT DECREASED [None]
  - PYREXIA [None]
  - TUMOUR ASSOCIATED FEVER [None]
